FAERS Safety Report 5700065-0 (Version None)
Quarter: 2008Q2

REPORT INFORMATION
  Report Type: 
  Country: None (occurrence: None)
  Receive Date: 20080410
  Receipt Date: 20080331
  Transmission Date: 20081010
  Serious: No
  Sender: FDA-Public Use
  Company Number: JP-ROCHE-554774

PATIENT
  Sex: Female
  Weight: 48 kg

DRUGS (4)
  1. TAMIFLU [Suspect]
     Route: 048
     Dates: start: 20080129, end: 20080201
  2. METHISTA [Concomitant]
     Route: 048
     Dates: start: 20080129, end: 20080201
  3. RESPLEN [Concomitant]
     Dosage: DIVIDED INTO THREE DOSES.
     Route: 048
     Dates: start: 20080129, end: 20080201
  4. CHLORPHENIRAMINE MALEATE [Concomitant]
     Dosage: DRUG: NEOMALLERMIN (D-CHLORPHENIRAMINE MALEATE), FORM: SUSTAINED RELEASE TABLET.
     Route: 048
     Dates: start: 20080129, end: 20080201

REACTIONS (2)
  - NEUTROPENIA [None]
  - RASH [None]
